FAERS Safety Report 24304903 (Version 1)
Quarter: 2024Q3

REPORT INFORMATION
  Report Type: Spontaneous
  Country: US (occurrence: US)
  Receive Date: 20240911
  Receipt Date: 20240911
  Transmission Date: 20241017
  Serious: No
  Sender: MERCK
  Company Number: US-009507513-2408USA002197

PATIENT
  Age: 42 Year
  Sex: Female

DRUGS (6)
  1. WINREVAIR [Suspect]
     Active Substance: SOTATERCEPT-CSRK
     Indication: Product used for unknown indication
     Dosage: UNK
     Dates: start: 202407
  2. TREPROSTINIL SODIUM [Suspect]
     Active Substance: TREPROSTINIL SODIUM
     Indication: Pulmonary arterial hypertension
     Dosage: UNK
     Route: 058
  3. TREPROSTINIL [Suspect]
     Active Substance: TREPROSTINIL
     Indication: Pulmonary arterial hypertension
     Dosage: 48 MICROGRAM, QID; FORMULATION: INHALATION POWDER
     Dates: start: 202304
  4. TYVASO DPI [Suspect]
     Active Substance: TREPROSTINIL
     Indication: Pulmonary arterial hypertension
     Dosage: FORMULATION: INHALATION POWDER
  5. OPSUMIT [Concomitant]
     Active Substance: MACITENTAN
  6. SILDENAFIL [Concomitant]
     Active Substance: SILDENAFIL

REACTIONS (5)
  - Pain [Unknown]
  - Pain in extremity [Unknown]
  - Muscle spasms [Unknown]
  - Restless legs syndrome [Unknown]
  - Pyrexia [Unknown]

NARRATIVE: CASE EVENT DATE: 20240701
